FAERS Safety Report 5412344-5 (Version None)
Quarter: 2007Q3

REPORT INFORMATION
  Report Type: 
  Country: None (occurrence: None)
  Receive Date: 20070809
  Receipt Date: 20070724
  Transmission Date: 20080115
  Serious: Yes (Death, Other)
  Sender: FDA-Public Use
  Company Number: 2006US-04132

PATIENT
  Age: 51 Year
  Sex: Male

DRUGS (1)
  1. ISOTRETINOIN [Suspect]
     Dosage: 200 MG, QD FOR 21 DAYS/CYCLE,
     Dates: start: 20060201, end: 20060601

REACTIONS (3)
  - DISEASE PROGRESSION [None]
  - GLIOBLASTOMA MULTIFORME [None]
  - NO THERAPEUTIC RESPONSE [None]
